FAERS Safety Report 8908510 (Version 1)
Quarter: 2012Q4

REPORT INFORMATION
  Report Type: 
  Country: US (occurrence: US)
  Receive Date: 20121114
  Receipt Date: 20121114
  Transmission Date: 20130627
  Serious: Yes (Other)
  Sender: FDA-Public Use
  Company Number: US-ROCHE-1155293

PATIENT
  Age: 64 Year
  Sex: Male

DRUGS (2)
  1. BEVACIZUMAB [Suspect]
     Indication: RETINAL VEIN OCCLUSION
     Dosage: (1.25 mg/0.05 mL)
     Route: 050
  2. TRIAMCINOLONE ACETONIDE [Concomitant]
     Indication: MACULAR OEDEMA
     Dosage: 4 mg/ 0.1 ml
     Route: 050

REACTIONS (1)
  - Retinal infarction [Unknown]
